FAERS Safety Report 22318590 (Version 1)
Quarter: 2023Q2

REPORT INFORMATION
  Report Type: Spontaneous
  Country: US (occurrence: US)
  Receive Date: 20230515
  Receipt Date: 20230515
  Transmission Date: 20230721
  Serious: Yes (Other)
  Sender: FDA-Public Use
  Company Number: US-SA-SAC20230510000750

PATIENT
  Sex: Female
  Weight: 83.9 kg

DRUGS (13)
  1. AUBAGIO [Suspect]
     Active Substance: TERIFLUNOMIDE
     Indication: Multiple sclerosis
     Dosage: 14 MG, QD
     Route: 048
     Dates: start: 2016
  2. FISH OIL [Concomitant]
     Active Substance: FISH OIL
  3. FLAXSEED [Concomitant]
     Active Substance: FLAX SEED
  4. VITAMIN D3 [Concomitant]
     Active Substance: CHOLECALCIFEROL
  5. VITAMIN B COMPLEX [Concomitant]
     Active Substance: CYANOCOBALAMIN\DEXPANTHENOL\NIACINAMIDE\PYRIDOXINE HYDROCHLORIDE\RIBOFLAVIN 5^-PHOSPHATE SODIUM\THIA
  6. D MANNOSE [Concomitant]
  7. ALPRAZOLAM [Concomitant]
     Active Substance: ALPRAZOLAM
  8. VALACYCLOVIR [Concomitant]
     Active Substance: VALACYCLOVIR HYDROCHLORIDE
  9. METHENAMINE [Concomitant]
     Active Substance: METHENAMINE
  10. DEPLIN [LEVOMEFOLIC ACID] [Concomitant]
  11. CRANBERRY [Concomitant]
     Active Substance: CRANBERRY
  12. FISH OIL [Concomitant]
     Active Substance: FISH OIL
  13. BORAGE OIL [Concomitant]
     Active Substance: BORAGE OIL

REACTIONS (1)
  - Multiple sclerosis [Unknown]
